FAERS Safety Report 7016218-8 (Version None)
Quarter: 2010Q3

REPORT INFORMATION
  Report Type: 
  Country: None (occurrence: None)
  Receive Date: 20100927
  Receipt Date: 20090820
  Transmission Date: 20110219
  Serious: No
  Sender: FDA-Public Use
  Company Number: US-ASTRAZENECA-2009SE09116

PATIENT
  Sex: Female

DRUGS (2)
  1. ARIMIDEX [Suspect]
     Indication: BREAST CANCER
     Route: 048
  2. FEMARA [Concomitant]

REACTIONS (5)
  - AFFECT LABILITY [None]
  - ASTHENIA [None]
  - HOT FLUSH [None]
  - MYALGIA [None]
  - VISION BLURRED [None]
